FAERS Safety Report 18397978 (Version 1)
Quarter: 2020Q4

REPORT INFORMATION
  Report Type: Spontaneous
  Country: US (occurrence: US)
  Receive Date: 20201019
  Receipt Date: 20201019
  Transmission Date: 20210114
  Serious: Yes (Death)
  Sender: FDA-Public Use
  Company Number: None

PATIENT
  Age: 75 Year
  Sex: Male
  Weight: 92.3 kg

DRUGS (4)
  1. PIPERICILLIN- TAZOBACTIM [Concomitant]
     Dates: start: 20201003, end: 20201008
  2. REMDESIVIR. [Suspect]
     Active Substance: REMDESIVIR
     Indication: COVID-19
     Route: 042
     Dates: start: 20200929, end: 20201003
  3. METHYLPREDNISOLONE. [Concomitant]
     Active Substance: METHYLPREDNISOLONE
     Dates: start: 20200928, end: 20201006
  4. ENOXAPARIN [Concomitant]
     Active Substance: ENOXAPARIN
     Dates: start: 20201010, end: 20201010

REACTIONS (6)
  - Acute respiratory distress syndrome [None]
  - Acute respiratory failure [None]
  - Renal failure [None]
  - Haemodialysis [None]
  - Pulmonary fibrosis [None]
  - Acute kidney injury [None]

NARRATIVE: CASE EVENT DATE: 20201016
